FAERS Safety Report 5234397-X (Version None)
Quarter: 2007Q1

REPORT INFORMATION
  Report Type: 
  Country: None (occurrence: None)
  Receive Date: 20070209
  Receipt Date: 20070129
  Transmission Date: 20070707
  Serious: Yes (Hospitalization)
  Sender: FDA-Public Use
  Company Number: ES-ROCHE-480672

PATIENT
  Age: 83 Year
  Sex: Female

DRUGS (5)
  1. TORSEMIDE [Suspect]
     Route: 048
     Dates: start: 20060710, end: 20060817
  2. CARVEDILOL [Interacting]
     Route: 048
     Dates: start: 20060717, end: 20060817
  3. ENALAPRIL MALEATE [Interacting]
     Route: 048
     Dates: start: 20000615
  4. AXURA [Concomitant]
     Route: 048
     Dates: start: 20040615
  5. PREVENCOR [Concomitant]
     Route: 048
     Dates: start: 20000615

REACTIONS (3)
  - CONFUSIONAL STATE [None]
  - DRUG INTERACTION [None]
  - HYPOKALAEMIA [None]
